FAERS Safety Report 11825020 (Version 1)
Quarter: 2015Q4

REPORT INFORMATION
  Report Type: Spontaneous
  Country: US (occurrence: None)
  Receive Date: 20151210
  Receipt Date: 20151210
  Transmission Date: 20160305
  Serious: No
  Sender: FDA-Public Use
  Company Number: None

PATIENT
  Age: 36 Year
  Sex: Male
  Weight: 83.92 kg

DRUGS (7)
  1. GABAPENTIN. [Concomitant]
     Active Substance: GABAPENTIN
  2. ZOLPIDEM [Concomitant]
     Active Substance: ZOLPIDEM\ZOLPIDEM TARTRATE
  3. SUBOXONE [Suspect]
     Active Substance: BUPRENORPHINE HYDROCHLORIDE\NALOXONE HYDROCHLORIDE
     Indication: PAIN
     Dosage: TAKEN UNDER THE TONGUE
     Dates: start: 20151123, end: 20151209
  4. AMITRIPTYLINE [Concomitant]
     Active Substance: AMITRIPTYLINE
  5. DICYCLOMINE [Concomitant]
     Active Substance: DICYCLOMINE HYDROCHLORIDE
  6. OMEPRAZOLE. [Concomitant]
     Active Substance: OMEPRAZOLE
  7. SUBOXONE [Suspect]
     Active Substance: BUPRENORPHINE HYDROCHLORIDE\NALOXONE HYDROCHLORIDE
     Indication: PANCREATITIS CHRONIC
     Dosage: TAKEN UNDER THE TONGUE
     Dates: start: 20151123, end: 20151209

REACTIONS (9)
  - Pharyngeal hypoaesthesia [None]
  - Anorgasmia [None]
  - Hypoaesthesia [None]
  - Loss of libido [None]
  - Pharyngeal oedema [None]
  - Dysphagia [None]
  - Hyperhidrosis [None]
  - Hypoaesthesia oral [None]
  - Drug ineffective [None]

NARRATIVE: CASE EVENT DATE: 20151209
